FAERS Safety Report 4640587-7 (Version None)
Quarter: 2005Q2

REPORT INFORMATION
  Report Type: 
  Country: None (occurrence: None)
  Receive Date: 20050419
  Receipt Date: 20050404
  Transmission Date: 20051028
  Serious: Yes (Hospitalization)
  Sender: FDA-Public Use
  Company Number: MK200504-0046-1

PATIENT
  Age: 66 Year
  Sex: Male

DRUGS (1)
  1. BAROSPERSE ENEMA KT 454GM/16OZ BARIUM SULFATE [Suspect]
     Indication: BARIUM ENEMA
     Dosage: ONE TIME , PR
     Route: 054
     Dates: start: 20020424, end: 20020424

REACTIONS (13)
  - AIR EMBOLISM [None]
  - BIOPSY LIVER ABNORMAL [None]
  - BLOOD PRESSURE INCREASED [None]
  - BODY TEMPERATURE INCREASED [None]
  - CARCINOMA IN SITU [None]
  - COLITIS [None]
  - COLON CANCER [None]
  - COLONIC POLYP [None]
  - ESCHERICHIA BACTERAEMIA [None]
  - FIBRIN DEGRADATION PRODUCTS INCREASED [None]
  - LARGE INTESTINAL ULCER [None]
  - LOSS OF CONSCIOUSNESS [None]
  - PROCEDURAL COMPLICATION [None]
